FAERS Safety Report 9156054 (Version 1)
Quarter: 2013Q1

REPORT INFORMATION
  Report Type: Spontaneous
  Country: BE (occurrence: BE)
  Receive Date: 20130311
  Receipt Date: 20130311
  Transmission Date: 20140127
  Serious: Yes (Other)
  Sender: FDA-Public Use
  Company Number: PHHY2013BE021091

PATIENT
  Age: 17 Year
  Sex: Male

DRUGS (5)
  1. VALPROIC ACID [Suspect]
     Indication: EPILEPSY
  2. ACYCLOVIR [Concomitant]
  3. LEVETIRACETAM [Concomitant]
  4. PHENYTOIN [Concomitant]
  5. BARBITURATES [Concomitant]

REACTIONS (7)
  - Neurological decompensation [Unknown]
  - Confusional state [Unknown]
  - Disorientation [Unknown]
  - Musculoskeletal stiffness [Unknown]
  - Neck pain [Unknown]
  - Status epilepticus [Unknown]
  - Hyperammonaemia [Unknown]
